FAERS Safety Report 8151144-2 (Version None)
Quarter: 2012Q1

REPORT INFORMATION
  Report Type: 
  Country: None (occurrence: None)
  Receive Date: 20120220
  Receipt Date: 20120213
  Transmission Date: 20120608
  Serious: Yes (Other)
  Sender: FDA-Public Use
  Company Number: BR-GLAXOSMITHKLINE-A0966438A

PATIENT
  Sex: Female
  Weight: 90 kg

DRUGS (4)
  1. CLONIDINE HYDROCHLORIDE [Concomitant]
  2. FLUTICASONE PROPIONATE/SALMETEROL [Suspect]
     Indication: ASTHMA
     Dosage: 1PUFF TWICE PER DAY
     Route: 055
     Dates: start: 20110701
  3. ARTROLIVE [Concomitant]
  4. OLMESARTAN MEDOXOMIL [Concomitant]

REACTIONS (3)
  - TREATMENT NONCOMPLIANCE [None]
  - ASTHMATIC CRISIS [None]
  - HYPERTENSION [None]
